FAERS Safety Report 19846746 (Version 1)
Quarter: 2021Q3

REPORT INFORMATION
  Report Type: Spontaneous
  Country: BR (occurrence: BR)
  Receive Date: 20210917
  Receipt Date: 20210917
  Transmission Date: 20211014
  Serious: Yes (Hospitalization)
  Sender: FDA-Public Use
  Company Number: BR-ASTRAZENECA-2021A706262

PATIENT
  Age: 74 Year
  Sex: Female

DRUGS (3)
  1. PURAN [Concomitant]
     Active Substance: LEVOTHYROXINE SODIUM
     Indication: AUTOIMMUNE THYROIDITIS
  2. CRESTOR [Suspect]
     Active Substance: ROSUVASTATIN CALCIUM
     Indication: ATHEROSCLEROSIS PROPHYLAXIS
     Dosage: HALF A TABLET FOR YEARS5.0MG UNKNOWN
     Route: 048
  3. OLMETEC [Concomitant]
     Active Substance: OLMESARTAN MEDOXOMIL
     Indication: LABILE HYPERTENSION

REACTIONS (7)
  - Off label use [Not Recovered/Not Resolved]
  - Weight increased [Recovering/Resolving]
  - Tooth fracture [Recovering/Resolving]
  - Neuropathy peripheral [Not Recovered/Not Resolved]
  - Hypersensitivity [Recovered/Resolved]
  - Pain [Recovering/Resolving]
  - Immune system disorder [Not Recovered/Not Resolved]

NARRATIVE: CASE EVENT DATE: 2015
